FAERS Safety Report 9202388 (Version 1)
Quarter: 2013Q2

REPORT INFORMATION
  Report Type: Report from Study
  Country: FR (occurrence: FR)
  Receive Date: 20130401
  Receipt Date: 20130401
  Transmission Date: 20140414
  Serious: Yes (Hospitalization, Other)
  Sender: FDA-Public Use
  Company Number: PHHY2012FR095147

PATIENT
  Age: 64 Year
  Sex: Female
  Weight: 55 kg

DRUGS (5)
  1. STI571 [Suspect]
     Indication: CHRONIC MYELOID LEUKAEMIA
     Dosage: 600 MG, DAILY
     Route: 048
     Dates: start: 20080802, end: 20120401
  2. STI571 [Suspect]
     Dosage: 400 MG, DAILY
     Route: 048
     Dates: start: 20120928, end: 20121010
  3. STI571 [Suspect]
     Dosage: 400 MG, DAILY
     Route: 048
     Dates: start: 20121023
  4. APROVEL [Concomitant]
     Indication: HYPERTENSION
     Dates: start: 1998
  5. CRESTOR [Concomitant]
     Indication: HYPERCHOLESTEROLAEMIA

REACTIONS (14)
  - General physical health deterioration [Recovered/Resolved]
  - Breath odour [Recovered/Resolved]
  - Mucosal inflammation [Recovered/Resolved]
  - Feeding disorder [Recovered/Resolved]
  - Renal failure [Recovered/Resolved]
  - Vomiting [Recovered/Resolved]
  - Dehydration [Recovered/Resolved]
  - Weight decreased [Not Recovered/Not Resolved]
  - Fungal infection [Not Recovered/Not Resolved]
  - Food intolerance [Unknown]
  - Brain natriuretic peptide decreased [Unknown]
  - Hyperalbuminaemia [Unknown]
  - Decreased appetite [Unknown]
  - Blood bilirubin unconjugated increased [Unknown]
